FAERS Safety Report 11350970 (Version 1)
Quarter: 2015Q3

REPORT INFORMATION
  Report Type: Spontaneous
  Country: US (occurrence: None)
  Receive Date: 20150709
  Receipt Date: 20150709
  Transmission Date: 20151125
  Serious: Yes (Other)
  Sender: FDA-Public Use
  Company Number: PHEH2014US016178

PATIENT
  Age: 75 Year
  Sex: Male

DRUGS (5)
  1. LAMICTAL [Concomitant]
     Active Substance: LAMOTRIGINE
  2. COREG [Concomitant]
     Active Substance: CARVEDILOL
  3. AGGRENOX (ACETYLSALICYLIC ACID, DIPYRIDAMOLE) [Concomitant]
  4. LOSARTAN. [Concomitant]
     Active Substance: LOSARTAN
  5. GLEEVEC [Suspect]
     Active Substance: IMATINIB MESYLATE
     Indication: PRODUCT USED FOR UNKNOWN INDICATION
     Dates: start: 200209

REACTIONS (2)
  - Disease progression [None]
  - No therapeutic response [None]
